FAERS Safety Report 8851693 (Version 1)
Quarter: 2012Q4

REPORT INFORMATION
  Report Type: 
  Country: US (occurrence: US)
  Receive Date: 20121022
  Receipt Date: 20121022
  Transmission Date: 20130627
  Serious: Yes (Other)
  Sender: FDA-Public Use
  Company Number: US-UCBSA-068739

PATIENT
  Age: 28 Year
  Sex: Male
  Weight: 102.05 kg

DRUGS (2)
  1. VIMPAT [Suspect]
     Indication: CONVULSION
     Route: 048
     Dates: start: 201104
  2. KEPPRA (GENERIC) [Concomitant]
     Indication: CONVULSION
     Route: 048
     Dates: start: 201004

REACTIONS (2)
  - Convulsion [Recovered/Resolved]
  - Aura [Recovered/Resolved]
